FAERS Safety Report 23474833 (Version 1)
Quarter: 2024Q1

REPORT INFORMATION
  Report Type: Report from Study
  Country: US (occurrence: US)
  Receive Date: 20240204
  Receipt Date: 20240204
  Transmission Date: 20240410
  Serious: Yes (Hospitalization)
  Sender: FDA-Public Use
  Company Number: US-EXELIXIS-CABO-23067464

PATIENT
  Age: 58 Year
  Sex: Female

DRUGS (2)
  1. CABOMETYX [Suspect]
     Active Substance: CABOZANTINIB S-MALATE
     Indication: Renal cancer
     Dosage: 20 MG FREQUENCY : ONCE DAILY MONDAY-SATURADAY, 40 MG  SUNDAYS ONLY
     Route: 048
     Dates: start: 202202
  2. LENVIMA [Concomitant]
     Active Substance: LENVATINIB
     Indication: Metastases to kidney

REACTIONS (4)
  - Diarrhoea [Unknown]
  - Adverse event [Unknown]
  - Adverse drug reaction [Unknown]
  - Inappropriate schedule of product administration [Unknown]

NARRATIVE: CASE EVENT DATE: 20230201
